FAERS Safety Report 9797520 (Version 1)
Quarter: 2014Q1

REPORT INFORMATION
  Report Type: Spontaneous
  Country: DE (occurrence: DE)
  Receive Date: 20140106
  Receipt Date: 20140106
  Transmission Date: 20141002
  Serious: Yes (Other)
  Sender: FDA-Public Use
  Company Number: PHHY2013DE151232

PATIENT
  Sex: Female

DRUGS (7)
  1. SANDIMMUN OPTORAL [Suspect]
     Indication: PROPHYLAXIS AGAINST TRANSPLANT REJECTION
     Dosage: 35 MG, BID
     Route: 048
     Dates: start: 2011, end: 201307
  2. SANDIMMUN OPTORAL [Suspect]
     Dosage: 25 MG, BID
     Route: 048
     Dates: start: 201307
  3. DECORTIN [Suspect]
     Indication: PROPHYLAXIS AGAINST TRANSPLANT REJECTION
     Dosage: 7.5 MG, QD
     Route: 048
  4. CELLCEPT [Concomitant]
     Indication: PROPHYLAXIS AGAINST TRANSPLANT REJECTION
     Dosage: 750 MG, BID
     Route: 048
  5. ZITHROMAX [Concomitant]
     Indication: INFECTION PROPHYLAXIS
  6. ITRACONAZOLE [Concomitant]
     Indication: INFECTION PROPHYLAXIS
  7. COTRIM [Concomitant]
     Indication: INFECTION PROPHYLAXIS

REACTIONS (12)
  - Eye disorder [Not Recovered/Not Resolved]
  - Dry eye [Not Recovered/Not Resolved]
  - Conjunctival oedema [Not Recovered/Not Resolved]
  - Scleral oedema [Not Recovered/Not Resolved]
  - Diabetes mellitus [Recovered/Resolved]
  - Lung transplant rejection [Recovered/Resolved]
  - Weight increased [Not Recovered/Not Resolved]
  - Fat tissue increased [Not Recovered/Not Resolved]
  - Oedema peripheral [Not Recovered/Not Resolved]
  - Alopecia [Recovered/Resolved]
  - Hair growth abnormal [Not Recovered/Not Resolved]
  - Weight decreased [Recovered/Resolved]
